FAERS Safety Report 7183883-4 (Version None)
Quarter: 2010Q4

REPORT INFORMATION
  Report Type: 
  Country: None (occurrence: None)
  Receive Date: 20101222
  Receipt Date: 20101216
  Transmission Date: 20110411
  Serious: Yes (Hospitalization)
  Sender: FDA-Public Use
  Company Number: AU-NAPPMUNDI-DEU-2010-0006719

PATIENT
  Sex: Male

DRUGS (16)
  1. HYDROMORPHONE HCL [Suspect]
     Indication: PAIN
     Dosage: 24 MG, DAILY
     Route: 048
     Dates: start: 20101112
  2. HYDROMORPHONE HCL [Suspect]
     Indication: CONSTIPATION
     Dosage: 20 MG, DAILY
     Route: 048
     Dates: start: 20101111, end: 20101111
  3. HYDROMORPHONE HCL [Suspect]
     Dosage: 16 MG, DAILY
     Route: 048
     Dates: start: 20101105, end: 20101110
  4. HYDROMORPHONE HCL [Suspect]
     Dosage: 12 MG, DAILY
     Route: 048
     Dates: start: 20101104, end: 20101104
  5. HYDROMORPHONE HCL [Suspect]
     Dosage: 8 MG, DAILY
     Route: 048
     Dates: start: 20101029, end: 20101103
  6. HYDROMORPHONE HCL [Suspect]
     Dosage: 4 MG, DAILY
     Route: 048
     Dates: start: 20101028, end: 20101028
  7. HIDROXOCOBALAMINA [Concomitant]
  8. ASPIRIN [Concomitant]
  9. PRAVASTATIN [Concomitant]
  10. CARVEDILOL [Concomitant]
  11. LISINOPRIL [Concomitant]
  12. CITALOPRAM [Concomitant]
  13. LANTUS [Concomitant]
  14. NOVORAPID [Concomitant]
  15. OMEPRAZOLE [Concomitant]
  16. PROBENECID [Concomitant]

REACTIONS (1)
  - ANGINA UNSTABLE [None]
